FAERS Safety Report 11492372 (Version 2)
Quarter: 2015Q3

REPORT INFORMATION
  Report Type: Report from Study
  Country: KR (occurrence: KR)
  Receive Date: 20150910
  Receipt Date: 20150915
  Transmission Date: 20151125
  Serious: Yes (Hospitalization)
  Sender: FDA-Public Use
  Company Number: KR-TAKEDA-2015TJP014355

PATIENT
  Age: 72 Year
  Sex: Female
  Weight: 62.2 kg

DRUGS (8)
  1. ALOGLIPTIN AND PIOGLITAZONE [Suspect]
     Active Substance: ALOGLIPTIN BENZOATE\PIOGLITAZONE HYDROCHLORIDE
     Indication: PRODUCT USED FOR UNKNOWN INDICATION
     Dosage: 2 T, QD
     Route: 048
     Dates: start: 20150507
  2. CURAN [Concomitant]
     Dosage: 300 MG, UNK
     Route: 048
     Dates: start: 20130916
  3. TROMVIX [Concomitant]
     Dosage: 75 MG, UNK
     Route: 048
     Dates: start: 20150430
  4. BLINDED ALOGLIPTIN [Suspect]
     Active Substance: ALOGLIPTIN
     Indication: PRODUCT USED FOR UNKNOWN INDICATION
     Dosage: 2 T, QD
     Route: 048
     Dates: start: 20150507
  5. BLINDED PIOGLITAZONE [Suspect]
     Active Substance: PIOGLITAZONE
     Indication: PRODUCT USED FOR UNKNOWN INDICATION
     Dosage: 2 T, QD
     Route: 048
     Dates: start: 20150507
  6. GLUPA [Concomitant]
     Active Substance: METFORMIN HYDROCHLORIDE
     Dosage: 1700 MG, UNK
     Route: 048
     Dates: start: 20130916
  7. BRVIX [Concomitant]
     Dosage: 75 MG, UNK
     Route: 048
     Dates: start: 20140711
  8. METFORMIN [Suspect]
     Active Substance: METFORMIN HYDROCHLORIDE
     Indication: PRODUCT USED FOR UNKNOWN INDICATION
     Dosage: 850 MG, BID
     Route: 048
     Dates: start: 20130916

REACTIONS (1)
  - Angina unstable [Recovered/Resolved]

NARRATIVE: CASE EVENT DATE: 20150625
